FAERS Safety Report 5252585-3 (Version None)
Quarter: 2007Q1

REPORT INFORMATION
  Report Type: 
  Country: None (occurrence: None)
  Receive Date: 20070227
  Receipt Date: 20070215
  Transmission Date: 20070707
  Serious: Yes (Life-Threatening, Hospitalization)
  Sender: FDA-Public Use
  Company Number: GXKR2007DK01731

PATIENT
  Age: 50 Year
  Sex: Male
  Weight: 110 kg

DRUGS (5)
  1. METFORMIN (NGX)(METFORMIN) TABLET, 850MG [Suspect]
     Indication: DIABETES MELLITUS
     Dosage: 850 MG, QID, ORAL
     Route: 048
  2. AMARYL [Concomitant]
  3. DIURAL (FUROSEMIDE) [Concomitant]
  4. HJERTEMAGNYL (ACETYLSALICYLIC ACID, MAGNESIUM OXIDE HEAVY) [Concomitant]
  5. CITALOPRAM HYDROBROMIDE [Concomitant]

REACTIONS (2)
  - LACTIC ACIDOSIS [None]
  - RENAL FAILURE [None]
